FAERS Safety Report 9011157 (Version 1)
Quarter: 2013Q1

REPORT INFORMATION
  Report Type: Spontaneous
  Country: BR (occurrence: BR)
  Receive Date: 20130109
  Receipt Date: 20130109
  Transmission Date: 20140127
  Serious: Yes (Death)
  Sender: FDA-Public Use
  Company Number: BR-PFIZER INC-2012324863

PATIENT
  Sex: Female
  Weight: 80 kg

DRUGS (6)
  1. SUTENT [Suspect]
     Indication: RENAL CANCER
     Dosage: 1 TABLET OF 50 MG, 1X/DAY
     Route: 048
     Dates: start: 20121101, end: 20121128
  2. OMEPRAZOL [Concomitant]
  3. FLUOXETINE [Concomitant]
  4. RIVOTRIL [Concomitant]
  5. LOSARTAN [Concomitant]
     Indication: HYPERTENSION
  6. DIMORF [Concomitant]
     Indication: PAIN

REACTIONS (3)
  - Death [Fatal]
  - Aphthous stomatitis [Unknown]
  - Dysphagia [Unknown]
